FAERS Safety Report 15419473 (Version 1)
Quarter: 2018Q3

REPORT INFORMATION
  Report Type: Spontaneous
  Country: US (occurrence: US)
  Receive Date: 20180924
  Receipt Date: 20180924
  Transmission Date: 20181010
  Serious: Yes (Death, Hospitalization, Other)
  Sender: FDA-Public Use
  Company Number: US-009507513-1809USA007670

PATIENT
  Age: 83 Year
  Sex: Male

DRUGS (4)
  1. LIPITOR [Concomitant]
     Active Substance: ATORVASTATIN CALCIUM
  2. VITAMIN D [Concomitant]
     Active Substance: CHOLECALCIFEROL
  3. WARFARIN [Concomitant]
     Active Substance: WARFARIN
  4. KEYTRUDA [Suspect]
     Active Substance: PEMBROLIZUMAB
     Indication: LUNG NEOPLASM MALIGNANT
     Dosage: EVERY 21 DAYS (Q3W)
     Route: 042
     Dates: start: 20171023

REACTIONS (12)
  - Frequent bowel movements [Unknown]
  - Abdominal discomfort [Unknown]
  - Anal incontinence [Unknown]
  - Muscular weakness [Unknown]
  - Gait disturbance [Unknown]
  - Diarrhoea [Unknown]
  - Sweating fever [Unknown]
  - Asthenia [Unknown]
  - Drug dose omission [Unknown]
  - Haemorrhage [Fatal]
  - Dyspnoea [Unknown]
  - Blood disorder [Not Recovered/Not Resolved]

NARRATIVE: CASE EVENT DATE: 2017
